FAERS Safety Report 5001561-4 (Version None)
Quarter: 2006Q2

REPORT INFORMATION
  Report Type: 
  Country: None (occurrence: None)
  Receive Date: 20060515
  Receipt Date: 20060421
  Transmission Date: 20061013
  Serious: Yes (Hospitalization)
  Sender: FDA-Public Use
  Company Number: PHRM2006FR01407

PATIENT
  Age: 59 Year
  Sex: Male
  Weight: 96 kg

DRUGS (2)
  1. TEGRETOL [Suspect]
     Indication: TRIGEMINAL NEURALGIA
     Dosage: UNK, UNK
     Route: 048
     Dates: start: 20040801
  2. ZOLOFT [Concomitant]

REACTIONS (4)
  - ANOMALOUS ATRIOVENTRICULAR EXCITATION [None]
  - ATRIAL TACHYCARDIA [None]
  - CARDIAC FLUTTER [None]
  - PACEMAKER GENERATED RHYTHM [None]
